FAERS Safety Report 11455366 (Version 1)
Quarter: 2015Q3

REPORT INFORMATION
  Report Type: Spontaneous
  Country: US (occurrence: US)
  Receive Date: 20150903
  Receipt Date: 20150903
  Transmission Date: 20151125
  Serious: No
  Sender: FDA-Public Use
  Company Number: US-BAYER-2015-408513

PATIENT
  Age: 64 Year
  Sex: Male
  Weight: 67.12 kg

DRUGS (2)
  1. MIRALAX [Suspect]
     Active Substance: POLYETHYLENE GLYCOL 3350
     Indication: LAXATIVE SUPPORTIVE CARE
     Dosage: 3 DF, QD
     Route: 048
     Dates: start: 201506
  2. COLACE [Suspect]
     Active Substance: DOCUSATE SODIUM
     Indication: LAXATIVE SUPPORTIVE CARE
     Dosage: 3 DF, QD
     Dates: start: 2015

REACTIONS (6)
  - Defaecation urgency [None]
  - Product use issue [None]
  - Off label use [None]
  - Product use issue [None]
  - Fatigue [None]
  - Asthenia [None]

NARRATIVE: CASE EVENT DATE: 201506
